FAERS Safety Report 7622468-X (Version None)
Quarter: 2011Q3

REPORT INFORMATION
  Report Type: 
  Country: None (occurrence: None)
  Receive Date: 20110711
  Receipt Date: 20110624
  Transmission Date: 20111222
  Serious: Yes (Disabling)
  Sender: FDA-Public Use
  Company Number: 2011MA008248

PATIENT
  Age: 56 Year
  Sex: Female

DRUGS (6)
  1. VALPROIC ACID [Concomitant]
  2. PROCYCLIDINE HYDROCHLORIDE 2MG TAB [Concomitant]
  3. LITHIUM CARBONATE [Concomitant]
  4. RISPERIDONE [Concomitant]
  5. LEVOTHYROXINE SODIUM [Concomitant]
  6. SERTRALINE HYDROCHLORIDE [Suspect]
     Indication: DEPRESSED MOOD
     Dosage: 50 MG; PO
     Route: 048
     Dates: start: 20110528, end: 20110531

REACTIONS (2)
  - RENAL FAILURE ACUTE [None]
  - GLOMERULAR FILTRATION RATE DECREASED [None]
